APPROVED DRUG PRODUCT: HAILEY FE 1/20
Active Ingredient: ETHINYL ESTRADIOL; NORETHINDRONE ACETATE
Strength: 0.02MG;1MG
Dosage Form/Route: TABLET;ORAL-28
Application: A206597 | Product #001 | TE Code: AB
Applicant: GLENMARK PHARMACEUTICALS LTD
Approved: Nov 21, 2017 | RLD: No | RS: No | Type: RX